FAERS Safety Report 9286677 (Version 2)
Quarter: 2013Q2

REPORT INFORMATION
  Report Type: Spontaneous
  Country: US (occurrence: US)
  Receive Date: 20130513
  Receipt Date: 20130531
  Transmission Date: 20140414
  Serious: Yes (Death, Hospitalization)
  Sender: FDA-Public Use
  Company Number: US-B.I. PHARMACEUTICALS,INC./RIDGEFIELD-2013-BI-13076BP

PATIENT
  Age: 80 Year
  Sex: Male

DRUGS (1)
  1. PRADAXA [Suspect]
     Indication: ATRIAL FIBRILLATION
     Route: 048
     Dates: end: 2013

REACTIONS (6)
  - Multi-organ failure [Fatal]
  - Shock haemorrhagic [Fatal]
  - Small intestinal obstruction [Recovered/Resolved]
  - Procedural haemorrhage [Not Recovered/Not Resolved]
  - Hypotension [Unknown]
  - Renal failure [Unknown]
